FAERS Safety Report 10666898 (Version 1)
Quarter: 2014Q4

REPORT INFORMATION
  Report Type: Spontaneous
  Country: US (occurrence: US)
  Receive Date: 20141222
  Receipt Date: 20141222
  Transmission Date: 20150529
  Serious: No
  Sender: FDA-Public Use
  Company Number: US-BIOGENIDEC-2014BI134350

PATIENT
  Age: 42 Year
  Sex: Female

DRUGS (1)
  1. TYSABRI [Suspect]
     Active Substance: NATALIZUMAB
     Indication: MULTIPLE SCLEROSIS
     Route: 042
     Dates: start: 2014

REACTIONS (8)
  - Paraesthesia [Not Recovered/Not Resolved]
  - Gait disturbance [Not Recovered/Not Resolved]
  - Ageusia [Not Recovered/Not Resolved]
  - Tremor [Not Recovered/Not Resolved]
  - Mouth swelling [Not Recovered/Not Resolved]
  - Optic neuritis [Not Recovered/Not Resolved]
  - Hypoaesthesia [Not Recovered/Not Resolved]
  - Discomfort [Not Recovered/Not Resolved]

NARRATIVE: CASE EVENT DATE: 2014
